FAERS Safety Report 7624197-5 (Version None)
Quarter: 2011Q3

REPORT INFORMATION
  Report Type: 
  Country: None (occurrence: None)
  Receive Date: 20110720
  Receipt Date: 20110720
  Transmission Date: 20111222
  Serious: Yes (Life-Threatening, Hospitalization)
  Sender: FDA-Public Use
  Company Number: None

PATIENT
  Age: 59 Year
  Sex: Female
  Weight: 107 kg

DRUGS (1)
  1. DAPTOMYCIN [Suspect]
     Indication: MEDIASTINITIS
     Dosage: 1000MG
     Route: 042
     Dates: start: 20110415, end: 20110422

REACTIONS (4)
  - PYREXIA [None]
  - LEUKOCYTOSIS [None]
  - LUNG INFILTRATION [None]
  - DYSPNOEA [None]
